FAERS Safety Report 22605452 (Version 1)
Quarter: 2023Q2

REPORT INFORMATION
  Report Type: Report from Study
  Country: IT (occurrence: IT)
  Receive Date: 20230615
  Receipt Date: 20230615
  Transmission Date: 20230721
  Serious: Yes (Other)
  Sender: FDA-Public Use
  Company Number: IT-JNJFOC-20230617011

PATIENT

DRUGS (1)
  1. OXYBUTYNIN [Suspect]
     Active Substance: OXYBUTYNIN
     Indication: Hidradenitis
     Dosage: 5 MG/DIE FOR 1 WEEK, AND AN ADDITIONAL 2.5 MG WAS ADMINISTERED FOR 1 WEEK AND FURTHER 2.5 MG FOR 1 W
     Route: 048

REACTIONS (3)
  - Xerophthalmia [Unknown]
  - Vulvovaginal dryness [Unknown]
  - Off label use [Unknown]
